FAERS Safety Report 11110256 (Version 1)
Quarter: 2015Q2

REPORT INFORMATION
  Report Type: Spontaneous
  Country: JP (occurrence: JP)
  Receive Date: 20150513
  Receipt Date: 20150513
  Transmission Date: 20150821
  Serious: Yes (Other)
  Sender: FDA-Public Use
  Company Number: JP-GLAXOSMITHKLINE-JP2015JPN030572

PATIENT
  Age: 9 Year
  Sex: Male
  Weight: 41.5 kg

DRUGS (3)
  1. FLUNASE [Suspect]
     Active Substance: FLUTICASONE PROPIONATE
     Indication: RHINORRHOEA
  2. CELTECT [Concomitant]
     Active Substance: OXATOMIDE
     Dosage: 30 MG, QD
  3. FLUNASE [Suspect]
     Active Substance: FLUTICASONE PROPIONATE
     Indication: RHINITIS ALLERGIC
     Dosage: 250 ?G, 1D
     Route: 045
     Dates: start: 20150305, end: 20150306

REACTIONS (6)
  - Malaise [Recovered/Resolved]
  - Nausea [Recovered/Resolved]
  - Vomiting [Recovered/Resolved]
  - Urticaria [Recovered/Resolved]
  - Upper respiratory tract inflammation [Recovered/Resolved]
  - Overdose [Unknown]

NARRATIVE: CASE EVENT DATE: 20150306
